FAERS Safety Report 8964185 (Version 1)
Quarter: 2012Q4

REPORT INFORMATION
  Report Type: 
  Country: DK (occurrence: CA)
  Receive Date: 20121214
  Receipt Date: 20121214
  Transmission Date: 20130627
  Serious: Yes (Other)
  Sender: FDA-Public Use
  Company Number: CA-FRI-1000036970

PATIENT
  Age: 23 Year
  Sex: Male

DRUGS (1)
  1. ESCITALOPRAM [Suspect]
     Dosage: 10 mg

REACTIONS (3)
  - Sensory loss [Unknown]
  - Headache [Unknown]
  - Malaise [Unknown]
